FAERS Safety Report 6140117-7 (Version None)
Quarter: 2009Q1

REPORT INFORMATION
  Report Type: 
  Country: None (occurrence: None)
  Receive Date: 20090324
  Receipt Date: 20090316
  Transmission Date: 20090719
  Serious: Yes (Hospitalization, Other)
  Sender: FDA-Public Use
  Company Number: 2009S1004601

PATIENT
  Sex: Male

DRUGS (12)
  1. WARFARIN SODIUM [Suspect]
     Indication: AORTIC VALVE REPLACEMENT
     Dosage: ORAL
     Route: 048
     Dates: start: 20040104, end: 20090302
  2. ASPIRIN [Concomitant]
  3. ATENOLOL [Concomitant]
  4. ATORVASTATIN CALCIUM [Concomitant]
  5. BROMOCRIPTINE MESYLATE [Concomitant]
  6. FERROUS SULFATE TAB [Concomitant]
  7. FUROSEMIDE [Concomitant]
  8. GLYCERYL TRINITRATE (GLYLCERYL TRINITRATE) [Concomitant]
  9. HYDROCORTISONE [Concomitant]
  10. IRBESARTAN [Concomitant]
  11. NOVOMIX /01475801/ (INSULIN ASPART) [Concomitant]
  12. RANITIDINE [Concomitant]

REACTIONS (4)
  - ANAEMIA [None]
  - DYSPNOEA [None]
  - EPISTAXIS [None]
  - INTERNATIONAL NORMALISED RATIO INCREASED [None]
